FAERS Safety Report 12200263 (Version 1)
Quarter: 2016Q1

REPORT INFORMATION
  Report Type: Spontaneous
  Country: IT (occurrence: IT)
  Receive Date: 20160322
  Receipt Date: 20160322
  Transmission Date: 20160526
  Serious: Yes (Other)
  Sender: FDA-Public Use
  Company Number: IT-MYLANLABS-2016M1012059

PATIENT

DRUGS (4)
  1. CLOBAZAM [Concomitant]
     Active Substance: CLOBAZAM
     Indication: ENCEPHALOPATHY
     Dosage: 1 MG/KG/24 H
     Route: 065
  2. TOPIRAMATE. [Concomitant]
     Active Substance: TOPIRAMATE
     Indication: ENCEPHALOPATHY
     Dosage: 3 MG/KG/24 H
     Route: 065
  3. PHENYTOIN. [Suspect]
     Active Substance: PHENYTOIN
     Indication: SEIZURE
     Dosage: INITIALLY AT 0.5 MG/KG
     Route: 065
  4. PHENYTOIN. [Suspect]
     Active Substance: PHENYTOIN
     Dosage: UP TO 2.6 MG/KG/DAY AFTER 2 WEEKS
     Route: 065

REACTIONS (3)
  - Coma [Recovered/Resolved]
  - Lethargy [Recovered/Resolved]
  - Toxicity to various agents [Recovered/Resolved]
